FAERS Safety Report 18630221 (Version 1)
Quarter: 2020Q4

REPORT INFORMATION
  Report Type: Spontaneous
  Country: FR (occurrence: FR)
  Receive Date: 20201218
  Receipt Date: 20201218
  Transmission Date: 20210114
  Serious: Yes (Hospitalization, Other)
  Sender: FDA-Public Use
  Company Number: FR-AMGEN-FRASP2020201352

PATIENT
  Age: 64 Year
  Sex: Male

DRUGS (1)
  1. ADALIMUMAB [Suspect]
     Active Substance: ADALIMUMAB
     Indication: INTESTINAL DIAPHRAGM DISEASE
     Dosage: UNK
     Route: 065

REACTIONS (2)
  - Intestinal diaphragm disease [Recovered/Resolved]
  - Off label use [Unknown]
